FAERS Safety Report 6099442-0 (Version None)
Quarter: 2009Q1

REPORT INFORMATION
  Report Type: 
  Country: None (occurrence: None)
  Receive Date: 20090226
  Receipt Date: 20090213
  Transmission Date: 20090719
  Serious: Yes (Other)
  Sender: FDA-Public Use
  Company Number: 2009S1002781

PATIENT
  Age: 3 Year
  Sex: Female
  Weight: 14 kg

DRUGS (1)
  1. METODURA Z (METOPROLOL) (50 MG) [Suspect]
     Indication: ACCIDENTAL EXPOSURE
     Dosage: 25 MG; ORAL
     Route: 048

REACTIONS (1)
  - ACCIDENTAL DRUG INTAKE BY CHILD [None]
